FAERS Safety Report 11103456 (Version 1)
Quarter: 2015Q2

REPORT INFORMATION
  Report Type: Report from Study
  Country: US (occurrence: US)
  Receive Date: 20150511
  Receipt Date: 20150511
  Transmission Date: 20150821
  Serious: Yes (Other)
  Sender: FDA-Public Use
  Company Number: US-BAYER-2014-006068

PATIENT
  Age: 66 Year
  Sex: Female

DRUGS (2)
  1. STIVARGA [Suspect]
     Active Substance: REGORAFENIB
     Indication: GASTROINTESTINAL STROMAL TUMOUR
     Dosage: 160 MG, QD FOR 21 DAYS
     Route: 048
     Dates: start: 20131213
  2. STIVARGA [Suspect]
     Active Substance: REGORAFENIB
     Indication: GASTROINTESTINAL STROMAL TUMOUR
     Dosage: 160 MG, QD
     Route: 048
     Dates: start: 20131219

REACTIONS (23)
  - Diarrhoea [Not Recovered/Not Resolved]
  - Oral pain [None]
  - Hypertension [None]
  - Haematochezia [None]
  - Stoma site haemorrhage [None]
  - Haemorrhage [None]
  - Constipation [Not Recovered/Not Resolved]
  - Alopecia [None]
  - Dry skin [None]
  - Decreased appetite [Not Recovered/Not Resolved]
  - Gastric haemorrhage [None]
  - Intestinal haemorrhage [None]
  - Constipation [None]
  - Dry skin [Recovering/Resolving]
  - Skin exfoliation [None]
  - Fatigue [None]
  - Drug dose omission [None]
  - Palmar-plantar erythrodysaesthesia syndrome [None]
  - Hyperkeratosis [None]
  - Urinary tract infection [None]
  - Rash [None]
  - Weight decreased [Not Recovered/Not Resolved]
  - Hypoaesthesia [None]

NARRATIVE: CASE EVENT DATE: 201312
